FAERS Safety Report 18469328 (Version 2)
Quarter: 2020Q4

REPORT INFORMATION
  Report Type: Report from Study
  Country: US (occurrence: US)
  Receive Date: 20201105
  Receipt Date: 20201119
  Transmission Date: 20210114
  Serious: Yes (Death, Hospitalization, Other)
  Sender: FDA-Public Use
  Company Number: US-BRISTOL-MYERS SQUIBB COMPANY-BMS-2020-092287

PATIENT
  Age: 62 Year
  Sex: Male
  Weight: 68.1 kg

DRUGS (2)
  1. VARLILUMAB [Suspect]
     Active Substance: VARLILUMAB
     Indication: NON-HODGKIN^S LYMPHOMA
     Dosage: 215 MILLIGRAM
     Route: 042
     Dates: start: 20200914
  2. NIVOLUMAB [Suspect]
     Active Substance: NIVOLUMAB
     Indication: NON-HODGKIN^S LYMPHOMA
     Dosage: 240 MILLIGRAM, QCYCLE
     Route: 042
     Dates: start: 20200914

REACTIONS (2)
  - COVID-19 [Fatal]
  - Pneumonia [Unknown]

NARRATIVE: CASE EVENT DATE: 20201010
